FAERS Safety Report 8094999-2 (Version None)
Quarter: 2012Q1

REPORT INFORMATION
  Report Type: 
  Country: None (occurrence: None)
  Receive Date: 20120131
  Receipt Date: 20120131
  Transmission Date: 20120608
  Serious: Yes (Other)
  Sender: FDA-Public Use
  Company Number: None

PATIENT
  Age: 58 Year
  Sex: Female
  Weight: 75 kg

DRUGS (5)
  1. PHENERGAN [Concomitant]
     Route: 048
  2. PREDNISONE TAB [Concomitant]
     Route: 048
  3. ACETAMINOPHEN [Concomitant]
  4. LORATADINE [Concomitant]
     Route: 048
  5. OCTAGAM [Suspect]
     Indication: IMMUNOGLOBULINS ABNORMAL
     Dosage: 40 GRAMS
     Route: 051

REACTIONS (6)
  - ANXIETY [None]
  - MUSCULOSKELETAL PAIN [None]
  - BACK PAIN [None]
  - INFUSION RELATED REACTION [None]
  - RESTLESSNESS [None]
  - PRODUCT SUBSTITUTION ISSUE [None]
